FAERS Safety Report 21981656 (Version 1)
Quarter: 2023Q1

REPORT INFORMATION
  Report Type: Spontaneous
  Country: US (occurrence: US)
  Receive Date: 20230212
  Receipt Date: 20230212
  Transmission Date: 20230418
  Serious: No
  Sender: FDA-Public Use
  Company Number: US-SA-SAC20230209000589

PATIENT
  Age: 47 Year
  Sex: Male

DRUGS (1)
  1. ELOCTATE [Suspect]
     Active Substance: EFMOROCTOCOG ALFA
     Dosage: 4000 UNITS Q 5 DAYS AND PRN
     Route: 065

REACTIONS (2)
  - Limb injury [Unknown]
  - Tenderness [Unknown]

NARRATIVE: CASE EVENT DATE: 20230204
